FAERS Safety Report 19160861 (Version 1)
Quarter: 2021Q2

REPORT INFORMATION
  Report Type: Other
  Country: ES (occurrence: ES)
  Receive Date: 20210421
  Receipt Date: 20210421
  Transmission Date: 20210717
  Serious: Yes (Other)
  Sender: FDA-Public Use
  Company Number: ES-CELLTRION INC.-2021ES005260

PATIENT

DRUGS (2)
  1. PERTUZUMAB. [Suspect]
     Active Substance: PERTUZUMAB
     Indication: HER2 POSITIVE BREAST CANCER
     Dosage: UNK
     Route: 065
     Dates: start: 201805
  2. TRASTUZUMAB (UNKNOWN) [Suspect]
     Active Substance: TRASTUZUMAB
     Indication: HER2 POSITIVE BREAST CANCER
     Dosage: UNK
     Route: 065
     Dates: start: 201805

REACTIONS (3)
  - COVID-19 [Unknown]
  - Acute leukaemia [Unknown]
  - Myelodysplastic syndrome [Unknown]
